FAERS Safety Report 4530348-1 (Version None)
Quarter: 2004Q4

REPORT INFORMATION
  Report Type: 
  Country: None (occurrence: None)
  Receive Date: 20041215
  Receipt Date: 20041202
  Transmission Date: 20050328
  Serious: Yes (Hospitalization, Disabling, Other)
  Sender: FDA-Public Use
  Company Number: 2004105845

PATIENT
  Age: 78 Year
  Sex: Female

DRUGS (6)
  1. LUSTRAL (SERTRALINE) [Suspect]
     Indication: DEPRESSION
     Dosage: (2 IN 1 D), ORAL
     Route: 048
     Dates: start: 20000101
  2. QUETIAPINE (QUETIAPINE) [Suspect]
     Indication: HALLUCINATION
     Dosage: 25 MG (25 MG, 1 IN 1 D)
  3. LACTULOSE (LACTULOSE0 [Concomitant]
  4. CO-AMILOFRUSE(AMILORIDE HYDROCHLORIDE, FUROSEMIDE) [Concomitant]
  5. CO-CODAMOL (CODEINE PHOSPHATE, PARACETAMOL) [Concomitant]
  6. SENNA (SENNA) [Concomitant]

REACTIONS (10)
  - CONSTIPATION [None]
  - DELUSIONAL DISORDER, PERSECUTORY TYPE [None]
  - DYSPHAGIA [None]
  - DYSTONIA [None]
  - GAIT DISTURBANCE [None]
  - HALLUCINATION [None]
  - MOBILITY DECREASED [None]
  - PAIN [None]
  - TARDIVE DYSKINESIA [None]
  - TREMOR [None]
